FAERS Safety Report 7989824-1 (Version None)
Quarter: 2011Q4

REPORT INFORMATION
  Report Type: 
  Country: None (occurrence: None)
  Receive Date: 20111219
  Receipt Date: 20101129
  Transmission Date: 20120403
  Serious: No
  Sender: FDA-Public Use
  Company Number: US-ASTRAZENECA-2010SE56430

PATIENT
  Age: 53 Year
  Sex: Female
  Weight: 55.8 kg

DRUGS (1)
  1. CRESTOR [Suspect]
     Indication: HYPERCHOLESTEROLAEMIA
     Route: 048
     Dates: start: 20100529

REACTIONS (3)
  - HAIR DISORDER [None]
  - PAIN [None]
  - LETHARGY [None]
